FAERS Safety Report 7410636-1 (Version None)
Quarter: 2011Q2

REPORT INFORMATION
  Report Type: 
  Country: None (occurrence: None)
  Receive Date: 20110413
  Receipt Date: 20110330
  Transmission Date: 20111010
  Serious: Yes (Death, Other)
  Sender: FDA-Public Use
  Company Number: ES-CELGENEUS-144-21880-11021643

PATIENT
  Sex: Female
  Weight: 48 kg

DRUGS (9)
  1. FOLIC [Concomitant]
     Route: 065
  2. MORPHICS [Concomitant]
     Route: 065
  3. ALLOPURINOL [Concomitant]
     Route: 065
  4. BEMIPARIN [Concomitant]
     Route: 065
  5. OMEPRAZOLE [Concomitant]
     Route: 065
  6. SEPTRIM [Concomitant]
     Route: 065
  7. CYCLOPHOSPHAMIDE [Suspect]
     Indication: MULTIPLE MYELOMA
     Dosage: 25 MILLIGRAM
     Route: 065
  8. REVLIMID [Suspect]
     Indication: MULTIPLE MYELOMA
     Dosage: 15 MILLIGRAM
     Route: 048
     Dates: end: 20101102
  9. PREDNISONE [Suspect]
     Dosage: 25 MILLIGRAM
     Route: 065

REACTIONS (2)
  - MULTIPLE MYELOMA [None]
  - HAEMATOTOXICITY [None]
